FAERS Safety Report 22229258 (Version 1)
Quarter: 2023Q2

REPORT INFORMATION
  Report Type: Report from Study
  Country: FR (occurrence: FR)
  Receive Date: 20230419
  Receipt Date: 20230419
  Transmission Date: 20230721
  Serious: Yes (Hospitalization, Other)
  Sender: FDA-Public Use
  Company Number: FR-MIRATI-MT2023CT03599

PATIENT

DRUGS (8)
  1. ADAGRASIB [Suspect]
     Active Substance: ADAGRASIB
     Indication: Non-small cell lung cancer
     Dosage: 600 MG, BID
     Route: 048
     Dates: start: 20230216, end: 20230227
  2. ADAGRASIB [Suspect]
     Active Substance: ADAGRASIB
     Dosage: 400 MG, BID
     Route: 048
     Dates: start: 20230302, end: 20230314
  3. SKENAN [Concomitant]
     Active Substance: MORPHINE SULFATE
     Indication: Chest pain
     Dosage: 20 MG
     Route: 048
     Dates: start: 20230216
  4. ABSTRAL [Concomitant]
     Active Substance: FENTANYL CITRATE
     Indication: Chest pain
     Dosage: 200 UG
     Route: 048
     Dates: start: 20230216
  5. INNOHEP [Concomitant]
     Active Substance: TINZAPARIN SODIUM
     Indication: Thrombosis prophylaxis
     Dosage: 14000 IU
     Route: 058
     Dates: start: 202212
  6. INNOHEP [Concomitant]
     Active Substance: TINZAPARIN SODIUM
     Indication: Chest pain
  7. XGEVA [Concomitant]
     Active Substance: DENOSUMAB
     Indication: Metastatic bone disease prophylaxis
     Dosage: 120 MG
     Route: 058
     Dates: start: 20220216
  8. CALCIUM CARBONATE\CHOLECALCIFEROL [Concomitant]
     Active Substance: CALCIUM CARBONATE\CHOLECALCIFEROL
     Indication: Vitamin supplementation
     Dosage: 500 MG/1000 UI
     Route: 048
     Dates: start: 20220216

REACTIONS (4)
  - Vomiting [Recovered/Resolved]
  - Nausea [Recovered/Resolved]
  - Dehydration [Recovered/Resolved]
  - Retinopathy [Not Recovered/Not Resolved]

NARRATIVE: CASE EVENT DATE: 20230228
